FAERS Safety Report 7488120-9 (Version None)
Quarter: 2011Q2

REPORT INFORMATION
  Report Type: 
  Country: None (occurrence: None)
  Receive Date: 20110518
  Receipt Date: 20110513
  Transmission Date: 20111010
  Serious: No
  Sender: FDA-Public Use
  Company Number: US-TEVA-281851USA

PATIENT
  Sex: Female
  Weight: 68.1 kg

DRUGS (2)
  1. PLAN B ONE-STEP [Suspect]
     Indication: POST COITAL CONTRACEPTION
     Dosage: 1.5 MILLIGRAM;
     Route: 048
     Dates: start: 20110513, end: 20110513
  2. LUVOX [Concomitant]
     Indication: OBSESSIVE-COMPULSIVE DISORDER

REACTIONS (5)
  - CHILLS [None]
  - DIZZINESS [None]
  - VOMITING [None]
  - FATIGUE [None]
  - HEADACHE [None]
